FAERS Safety Report 25021544 (Version 4)
Quarter: 2025Q4

REPORT INFORMATION
  Report Type: Spontaneous
  Country: CA (occurrence: CA)
  Receive Date: 20250228
  Receipt Date: 20251021
  Transmission Date: 20260117
  Serious: Yes (Hospitalization)
  Sender: CELLTRION
  Company Number: CA-PFIZER INC-202500017132

PATIENT

DRUGS (2)
  1. INFLIXIMAB [Suspect]
     Active Substance: INFLIXIMAB
     Indication: Colitis
     Dosage: 800 MILLIGRAM
     Route: 042
  2. INFLECTRA [Suspect]
     Active Substance: INFLIXIMAB-DYYB
     Indication: Colitis
     Dosage: 800 MG EVERY 4 WEEKS
     Route: 042
     Dates: start: 20250123, end: 20250123

REACTIONS (5)
  - Condition aggravated [Not Recovered/Not Resolved]
  - Bacterial infection [Not Recovered/Not Resolved]
  - Drug ineffective for unapproved indication [Not Recovered/Not Resolved]
  - Off label use [Not Recovered/Not Resolved]
  - Intentional product use issue [Unknown]
